FAERS Safety Report 4431017-9 (Version None)
Quarter: 2004Q3

REPORT INFORMATION
  Report Type: 
  Country: None (occurrence: None)
  Receive Date: 20040818
  Receipt Date: 20040812
  Transmission Date: 20050211
  Serious: Yes (Other)
  Sender: FDA-Public Use
  Company Number: 002392

PATIENT
  Sex: Female

DRUGS (4)
  1. MEDROXYPROGESTERONE ACETATE [Suspect]
  2. PREMARIN [Suspect]
  3. PREMPHASE (PREMARIN;CYCRIN 14/14) [Suspect]
  4. ESTROGEN NOS (ESTROGEN NOS) [Suspect]

REACTIONS (1)
  - BREAST CANCER FEMALE [None]
